FAERS Safety Report 7060900-3 (Version None)
Quarter: 2010Q4

REPORT INFORMATION
  Report Type: 
  Country: None (occurrence: None)
  Receive Date: 20101025
  Receipt Date: 20101011
  Transmission Date: 20110411
  Serious: Yes (Hospitalization, Other)
  Sender: FDA-Public Use
  Company Number: PHFR2010GB02312

PATIENT
  Sex: Male
  Weight: 70.5 kg

DRUGS (2)
  1. GLEEVEC [Suspect]
     Indication: GASTROINTESTINAL STROMAL TUMOUR
     Dosage: 400 MG, QD
     Route: 048
     Dates: start: 20091218, end: 20100325
  2. IBUPROFEN [Concomitant]
     Indication: PAIN
     Dosage: 200 MG, QD
     Route: 048

REACTIONS (2)
  - DRUG INTOLERANCE [None]
  - LOSS OF CONSCIOUSNESS [None]
